FAERS Safety Report 11080150 (Version 1)
Quarter: 2015Q2

REPORT INFORMATION
  Report Type: Spontaneous
  Country: US (occurrence: US)
  Receive Date: 20150430
  Receipt Date: 20150430
  Transmission Date: 20150821
  Serious: Yes (Hospitalization)
  Sender: FDA-Public Use
  Company Number: US-MYLANLABS-2015M1013973

PATIENT

DRUGS (1)
  1. FENTANYL. [Suspect]
     Active Substance: FENTANYL
     Dosage: 75 ?G, QH, CHANGE 72 HRS
     Route: 062

REACTIONS (3)
  - Hospitalisation [Not Recovered/Not Resolved]
  - Application site laceration [Not Recovered/Not Resolved]
  - Application site erythema [Not Recovered/Not Resolved]
